FAERS Safety Report 15471018 (Version 3)
Quarter: 2023Q4

REPORT INFORMATION
  Report Type: Report from Study
  Country: DE (occurrence: DE)
  Receive Date: 20181006
  Receipt Date: 20231124
  Transmission Date: 20240109
  Serious: Yes (Hospitalization)
  Sender: FDA-Public Use
  Company Number: DE-AMGEN-DEUNI2018136269

PATIENT
  Age: 78 Year
  Sex: Male
  Weight: 65 kg

DRUGS (22)
  1. PANITUMUMAB [Suspect]
     Active Substance: PANITUMUMAB
     Indication: Colorectal cancer metastatic
     Dosage: 390 MILLIGRAM
     Route: 042
     Dates: start: 20180529
  2. PANITUMUMAB [Suspect]
     Active Substance: PANITUMUMAB
     Dosage: 414 MILLIGRAM
     Route: 042
     Dates: start: 20181023
  3. LEUCOVORIN [Suspect]
     Active Substance: LEUCOVORIN\LEUCOVORIN CALCIUM
     Indication: Colorectal cancer metastatic
     Dosage: 695 MILLIGRAM
     Route: 065
     Dates: start: 20180529
  4. LEUCOVORIN [Suspect]
     Active Substance: LEUCOVORIN\LEUCOVORIN CALCIUM
     Dosage: 713 MILLIGRAM
     Route: 065
     Dates: start: 20181023
  5. FLUOROURACIL [Suspect]
     Active Substance: FLUOROURACIL
     Indication: Colorectal cancer metastatic
     Dosage: 695 MILLIGRAM
     Route: 040
     Dates: start: 20180529
  6. FLUOROURACIL [Suspect]
     Active Substance: FLUOROURACIL
     Dosage: 4173 MILLIGRAM
     Route: 042
     Dates: start: 20180529
  7. FLUOROURACIL [Suspect]
     Active Substance: FLUOROURACIL
     Dosage: 695 MILLIGRAM
     Route: 042
     Dates: start: 20180612
  8. FLUOROURACIL [Suspect]
     Active Substance: FLUOROURACIL
     Dosage: 4173 MILLIGRAM
     Route: 042
     Dates: start: 20180612
  9. FLUOROURACIL [Suspect]
     Active Substance: FLUOROURACIL
     Dosage: 695 MILLIGRAM
     Route: 042
     Dates: start: 20180612
  10. FLUOROURACIL [Suspect]
     Active Substance: FLUOROURACIL
     Dosage: 713 MILLIGRAM
     Route: 042
     Dates: start: 20181023
  11. FLUOROURACIL [Suspect]
     Active Substance: FLUOROURACIL
     Dosage: 4280 MILLIGRAM
     Route: 042
     Dates: start: 20181023
  12. IRINOTECAN [Suspect]
     Active Substance: IRINOTECAN
     Indication: Colorectal cancer metastatic
     Dosage: 313 MILLIGRAM
     Route: 065
     Dates: start: 20180529
  13. IRINOTECAN [Suspect]
     Active Substance: IRINOTECAN
     Dosage: 321 MILLIGRAM
     Route: 065
     Dates: start: 20181023
  14. ASPIRIN [Concomitant]
     Active Substance: ASPIRIN
     Indication: Pain
     Dosage: 100 MILLIGRAM, QD
     Route: 048
     Dates: start: 20180504
  15. ASPIRIN [Concomitant]
     Active Substance: ASPIRIN
     Indication: Syncope
  16. CERTOPARIN SODIUM [Concomitant]
     Active Substance: CERTOPARIN SODIUM
     Indication: Prophylaxis
     Dosage: 300 INTERNATIONAL UNIT, QD
     Route: 048
     Dates: start: 20180504
  17. ALOXI [Concomitant]
     Active Substance: PALONOSETRON HYDROCHLORIDE
     Indication: Prophylaxis
     Dosage: 250 MH, AS NECESSARY
     Route: 042
     Dates: start: 20180529, end: 20181120
  18. DEXTROMETHORPHAN [Concomitant]
     Active Substance: DEXTROMETHORPHAN
     Indication: Prophylaxis
     Dosage: 4-8 MILLIGRAM
     Dates: start: 20180529, end: 20181120
  19. PANTOPRAZOLE SODIUM [Concomitant]
     Active Substance: PANTOPRAZOLE SODIUM
     Indication: Prophylaxis
     Dosage: 20 MILLIGRAM, QD
     Route: 048
     Dates: start: 20180504
  20. MOVICOL [Concomitant]
     Active Substance: POLYETHYLENE GLYCOL 3350\POTASSIUM CHLORIDE\SODIUM BICARBONATE\SODIUM CHLORIDE
     Indication: Constipation
     Dosage: 999 UNK, QD
     Route: 048
     Dates: start: 20180504
  21. METAMIZOL [Concomitant]
     Active Substance: METAMIZOLE SODIUM
     Indication: Pain
     Dosage: 500 MILLIGRAM, QD
     Route: 048
     Dates: start: 20180504
  22. DOXYCYCLINE [Concomitant]
     Active Substance: DOXYCYCLINE
     Indication: Prophylaxis
     Dosage: 100 MILLIGRAM, QD
     Route: 048
     Dates: start: 20180529, end: 20181120

REACTIONS (2)
  - Syncope [Recovered/Resolved]
  - Skin fissures [Recovered/Resolved]

NARRATIVE: CASE EVENT DATE: 20180827
